FAERS Safety Report 8923929 (Version 2)
Quarter: 2013Q1

REPORT INFORMATION
  Report Type: Spontaneous
  Country: US (occurrence: US)
  Receive Date: 20121126
  Receipt Date: 20130111
  Transmission Date: 20140127
  Serious: No
  Sender: FDA-Public Use
  Company Number: US-PFIZER INC-2010171691

PATIENT
  Age: 50 Year
  Sex: Female
  Weight: 56.69 kg

DRUGS (3)
  1. PREMPRO [Suspect]
     Indication: MENOPAUSAL SYMPTOMS
     Dosage: 0.3/1.5 MG, 1X/DAY
     Dates: start: 201006
  2. PREMPRO [Suspect]
     Dosage: 2 X 0.3/1.5 MG, 1X/DAY
  3. PREMPRO [Suspect]
     Dosage: 0.625/2.5 (NO UNIT PROVIDED), 1X/DAY
     Dates: start: 20101216

REACTIONS (3)
  - Drug ineffective [Recovered/Resolved]
  - Feeling abnormal [Recovered/Resolved]
  - Throat irritation [Unknown]
